FAERS Safety Report 13153926 (Version 1)
Quarter: 2017Q1

REPORT INFORMATION
  Report Type: Spontaneous
  Country: US (occurrence: US)
  Receive Date: 20170126
  Receipt Date: 20170126
  Transmission Date: 20170428
  Serious: No
  Sender: FDA-Public Use
  Company Number: US-BAYER-2017-015392

PATIENT
  Age: 66 Year
  Sex: Male

DRUGS (1)
  1. ALEVE [Suspect]
     Active Substance: NAPROXEN SODIUM
     Indication: MUSCLE SPASMS
     Route: 065

REACTIONS (2)
  - Product use issue [None]
  - Drug ineffective for unapproved indication [Unknown]
